FAERS Safety Report 9848982 (Version 1)
Quarter: 2014Q1

REPORT INFORMATION
  Report Type: Spontaneous
  Country: RU (occurrence: RU)
  Receive Date: 20140128
  Receipt Date: 20140128
  Transmission Date: 20141002
  Serious: Yes (Other)
  Sender: FDA-Public Use
  Company Number: RU-ASTELLAS-2014US000715

PATIENT
  Age: 63 Year
  Sex: Female

DRUGS (2)
  1. TARCEVA [Suspect]
     Indication: LUNG NEOPLASM MALIGNANT
     Dosage: 100 MG, UID/QD
     Route: 048
  2. TARCEVA [Suspect]
     Dosage: 150 MG, UID/QD
     Route: 048
     Dates: start: 20131213, end: 20131220

REACTIONS (3)
  - Incorrect dose administered [Unknown]
  - Abdominal pain [Recovered/Resolved]
  - Diarrhoea [Recovered/Resolved]
